FAERS Safety Report 8478013-2 (Version None)
Quarter: 2012Q2

REPORT INFORMATION
  Report Type: 
  Country: None (occurrence: None)
  Receive Date: 20120622
  Receipt Date: 20120610
  Transmission Date: 20120825
  Serious: Yes (Other)
  Sender: FDA-Public Use
  Company Number: 12-460

PATIENT
  Age: 35 Year
  Sex: Female
  Weight: 63.49 kg

DRUGS (2)
  1. ALKA-SELTZER PLUS COLD AND COUGH / [Suspect]
     Indication: SINUSITIS
     Dosage: 2DF / TWICE DIALY / ORAL
     Route: 048
     Dates: start: 20120606, end: 20120607
  2. ALEVE [Suspect]
     Indication: DYSMENORRHOEA
     Dosage: 3DF / PRN / ORAL
     Route: 048
     Dates: start: 20120606, end: 20120607

REACTIONS (2)
  - CHEST PAIN [None]
  - SWELLING [None]
